FAERS Safety Report 6254113-2 (Version None)
Quarter: 2009Q3

REPORT INFORMATION
  Report Type: 
  Country: None (occurrence: None)
  Receive Date: 20090702
  Receipt Date: 20090629
  Transmission Date: 20100115
  Serious: Yes (Hospitalization, Other)
  Sender: FDA-Public Use
  Company Number: SG-ROXANE LABORATORIES, INC.-2009-RO-00622RO

PATIENT
  Age: 75 Year
  Sex: Female

DRUGS (15)
  1. METHOTREXATE [Suspect]
     Indication: RHEUMATOID ARTHRITIS
     Dates: start: 19970101, end: 20070101
  2. OMEPRAZOLE [Suspect]
  3. ISOSORBIDE DINITRATE [Suspect]
  4. BISOPROLOL FUMARATE [Suspect]
  5. NIFEDIPINE [Suspect]
  6. LOVASTATIN [Suspect]
  7. GLIPIZIDE [Suspect]
  8. METFORMIN HCL [Suspect]
  9. TICLOPIDINE HCL [Suspect]
  10. FAMOTIDINE [Suspect]
  11. CELECOXIB [Suspect]
  12. PREDNISOLONE [Suspect]
     Dosage: 5 MG
  13. RED BLOOD CELLS [Concomitant]
     Indication: PANCYTOPENIA
  14. FOLINIC ACID [Concomitant]
     Indication: PANCYTOPENIA
     Route: 042
  15. FOLINIC ACID [Concomitant]
     Route: 048

REACTIONS (9)
  - GASTRIC ULCER [None]
  - GASTRITIS [None]
  - HAEMORRHOIDS [None]
  - HELICOBACTER INFECTION [None]
  - HEPATIC CIRRHOSIS [None]
  - METAPLASIA [None]
  - PANCYTOPENIA [None]
  - RENAL CYST [None]
  - WEIGHT DECREASED [None]
